FAERS Safety Report 9293107 (Version 3)
Quarter: 2013Q3

REPORT INFORMATION
  Report Type: Spontaneous
  Country: US (occurrence: None)
  Receive Date: 20130514
  Receipt Date: 20130703
  Transmission Date: 20140515
  Serious: Yes (Death)
  Sender: FDA-Public Use
  Company Number: 1305-602

PATIENT
  Age: 77 Year
  Sex: Female
  Weight: 74.39 kg

DRUGS (13)
  1. VEGF TRAP-EYE [Suspect]
     Indication: DIABETIC RETINAL OEDEMA
     Dosage: INTRAVITREAL
     Dates: start: 20120822, end: 20130423
  2. PLAVIX [Suspect]
     Indication: ISCHAEMIA
     Route: 048
     Dates: start: 20110710
  3. CALCIUM + D [Concomitant]
  4. MECLIZINE (MECLIZINE) [Concomitant]
  5. METFORMIN (METFORMIN) [Concomitant]
  6. OCUVITE EXTRA (OCUVITE EXTRA) (TABLET) [Concomitant]
  7. CLARITIN (GLICLAZIDE) (TABLET) [Concomitant]
  8. MOVE FREE VITAMIN (GLUCOSAMINE W/CHONDROITIN SULFATE) (TABLET) [Concomitant]
  9. LEVEMIR PEN (INSULIN DETEMIR) [Concomitant]
  10. LISINOPRIL (LISINOPRIL) [Concomitant]
  11. OMEPRAZOLE (OMEPRAZOLE) [Concomitant]
  12. SPIRONOLACTONE (SPIRONOLACTONE) [Concomitant]
  13. ALPHAGAN (BRIMONIDINE TARTRATE) [Concomitant]

REACTIONS (4)
  - Gastrooesophageal reflux disease [None]
  - Haematemesis [None]
  - Upper gastrointestinal haemorrhage [None]
  - Cardiac arrest [None]
